FAERS Safety Report 24890389 (Version 3)
Quarter: 2025Q1

REPORT INFORMATION
  Report Type: Spontaneous
  Country: CN (occurrence: CN)
  Receive Date: 20250127
  Receipt Date: 20250225
  Transmission Date: 20250409
  Serious: Yes (Other)
  Sender: RIGEL PHARMACEUTICALS
  Company Number: CN-CSTONE PHARMACEUTICALS (SUZHOU) CO., LTD.-2025CN00012

PATIENT
  Sex: Male

DRUGS (2)
  1. GAVRETO [Suspect]
     Active Substance: PRALSETINIB
     Indication: Non-small cell lung cancer metastatic
     Route: 048
  2. GAVRETO [Suspect]
     Active Substance: PRALSETINIB
     Route: 048

REACTIONS (2)
  - Pulmonary tuberculosis [Unknown]
  - Pneumonia cytomegaloviral [Unknown]
